FAERS Safety Report 4437149-3 (Version None)
Quarter: 2004Q3

REPORT INFORMATION
  Report Type: 
  Country: None (occurrence: None)
  Receive Date: 20040824
  Receipt Date: 20040811
  Transmission Date: 20050211
  Serious: Yes (Hospitalization)
  Sender: FDA-Public Use
  Company Number: 2004UW08170

PATIENT
  Age: 60 Year
  Sex: Female

DRUGS (12)
  1. CRESTOR [Suspect]
     Indication: BLOOD CHOLESTEROL INCREASED
     Dosage: 10 MG PO
     Route: 048
     Dates: start: 20031110, end: 20040101
  2. LIPITOR [Concomitant]
  3. METHOTREXATE [Concomitant]
  4. PLAQUENIL [Concomitant]
  5. NAPROSYN [Concomitant]
  6. PERCOCET [Concomitant]
  7. XANAX [Concomitant]
  8. DOXEPIN HCL [Concomitant]
  9. AMBIEN [Concomitant]
  10. MULTIVITAMIN [Concomitant]
  11. GUAIFENESIN [Concomitant]
  12. BENZODIAZEPINE [Concomitant]

REACTIONS (9)
  - ALANINE AMINOTRANSFERASE INCREASED [None]
  - ASPARTATE AMINOTRANSFERASE INCREASED [None]
  - CHEST PAIN [None]
  - GASTROOESOPHAGEAL REFLUX DISEASE [None]
  - MYOPATHY [None]
  - MYOSITIS [None]
  - NON-CARDIAC CHEST PAIN [None]
  - RHABDOMYOLYSIS [None]
  - UPPER RESPIRATORY TRACT INFECTION [None]
